FAERS Safety Report 24742198 (Version 2)
Quarter: 2024Q4

REPORT INFORMATION
  Report Type: Spontaneous
  Country: US (occurrence: US)
  Receive Date: 20241217
  Receipt Date: 20241227
  Transmission Date: 20250115
  Serious: Yes (Other)
  Sender: ABBVIE
  Company Number: US-ABBVIE-6040676

PATIENT
  Age: 60 Year
  Sex: Male
  Weight: 91 kg

DRUGS (17)
  1. RINVOQ [Suspect]
     Active Substance: UPADACITINIB
     Indication: Ankylosing spondylitis
     Dosage: FORM STRENGTH: 15 MG?LAST ADMINISTRATION DATE 2024
     Route: 048
     Dates: start: 202406
  2. RINVOQ [Suspect]
     Active Substance: UPADACITINIB
     Indication: Ankylosing spondylitis
     Dosage: FORM STRENGTH: 15 MG
     Route: 048
     Dates: start: 20240820
  3. ROSUVASTATIN [Concomitant]
     Active Substance: ROSUVASTATIN
     Indication: Blood cholesterol
     Route: 048
  4. FOLIC ACID [Concomitant]
     Active Substance: FOLIC ACID
     Indication: Ankylosing spondylitis
     Route: 048
  5. VALACYCLOVIR [Concomitant]
     Active Substance: VALACYCLOVIR HYDROCHLORIDE
     Indication: Herpes zoster
     Dosage: DOSAGE: {DF}
  6. METFORMIN [Concomitant]
     Active Substance: METFORMIN HYDROCHLORIDE
     Indication: Diabetes mellitus
     Route: 048
  7. VITAMIN D3 [Concomitant]
     Active Substance: CHOLECALCIFEROL
     Indication: Vitamin supplementation
  8. FISH OIL [Concomitant]
     Active Substance: FISH OIL
     Indication: Blood triglycerides
     Dosage: DOSE FORM - GEL CAPSULE
     Route: 048
  9. MINERALS\VITAMINS [Concomitant]
     Active Substance: MINERALS\VITAMINS
     Indication: Vitamin supplementation
  10. LISINOPRIL [Concomitant]
     Active Substance: LISINOPRIL
     Indication: Diabetes mellitus
     Dosage: DOSAGE: {DF}
  11. RIVAROXABAN [Concomitant]
     Active Substance: RIVAROXABAN
     Indication: Thrombosis
     Route: 048
  12. EMPAGLIFLOZIN [Concomitant]
     Active Substance: EMPAGLIFLOZIN
     Indication: Diabetes mellitus
     Route: 048
  13. GLIPIZIDE [Concomitant]
     Active Substance: GLIPIZIDE
     Indication: Diabetes mellitus
     Route: 048
  14. EZETIMIBE [Concomitant]
     Active Substance: EZETIMIBE
     Indication: Blood cholesterol
     Route: 048
  15. OZEMPIC [Concomitant]
     Active Substance: SEMAGLUTIDE
     Indication: Diabetes mellitus
  16. FENOFIBRATE [Concomitant]
     Active Substance: FENOFIBRATE
     Indication: Blood triglycerides
     Route: 048
  17. CHOLECALCIFEROL [Concomitant]
     Active Substance: CHOLECALCIFEROL
     Indication: Vitamin D deficiency
     Route: 048

REACTIONS (2)
  - Herpes zoster [Not Recovered/Not Resolved]
  - Pain [Not Recovered/Not Resolved]

NARRATIVE: CASE EVENT DATE: 20241209
